FAERS Safety Report 24439619 (Version 1)
Quarter: 2024Q4

REPORT INFORMATION
  Report Type: Other
  Country: IN (occurrence: IN)
  Receive Date: 20241015
  Receipt Date: 20241015
  Transmission Date: 20250115
  Serious: Yes (Hospitalization, Other)
  Sender: B BRAUN
  Company Number: IN-B.Braun Medical Inc.-2163091

PATIENT
  Age: 67 Year
  Sex: Female

DRUGS (4)
  1. CALCIUM GLUCONATE [Suspect]
     Active Substance: CALCIUM GLUCONATE
  2. WARFARIN [Suspect]
     Active Substance: WARFARIN
  3. VITAMIN D [Suspect]
     Active Substance: VITAMIN D NOS
  4. VITAMIN D [Suspect]
     Active Substance: VITAMIN D NOS

REACTIONS (2)
  - Calciphylaxis [Recovering/Resolving]
  - Off label use [Recovering/Resolving]
